FAERS Safety Report 8073545-3 (Version None)
Quarter: 2012Q1

REPORT INFORMATION
  Report Type: 
  Country: None (occurrence: None)
  Receive Date: 20120126
  Receipt Date: 20120116
  Transmission Date: 20120608
  Serious: Yes (Life-Threatening, Hospitalization, Other)
  Sender: FDA-Public Use
  Company Number: DE-JNJFOC-20111208163

PATIENT
  Sex: Male

DRUGS (4)
  1. XARELTO [Suspect]
     Indication: THROMBOSIS PROPHYLAXIS
     Route: 065
     Dates: start: 20111214, end: 20111214
  2. XARELTO [Suspect]
     Indication: MENISCUS OPERATION
     Route: 065
     Dates: start: 20111214, end: 20111214
  3. IBUPROFEN [Suspect]
     Indication: ILL-DEFINED DISORDER
  4. AMITRIPTYLINE HCL [Suspect]
     Indication: ILL-DEFINED DISORDER

REACTIONS (5)
  - POST PROCEDURAL HAEMORRHAGE [None]
  - SUICIDE ATTEMPT [None]
  - WOUND HAEMORRHAGE [None]
  - PHARYNGEAL HAEMORRHAGE [None]
  - OVERDOSE [None]
